FAERS Safety Report 16321512 (Version 1)
Quarter: 2019Q2

REPORT INFORMATION
  Report Type: Spontaneous
  Country: US (occurrence: US)
  Receive Date: 20190410
  Receipt Date: 20190410
  Transmission Date: 20190711
  Serious: Yes (Hospitalization)
  Sender: FDA-Public Use
  Company Number: None

PATIENT
  Sex: Male
  Weight: 76.2 kg

DRUGS (2)
  1. NEXAVAR [Suspect]
     Active Substance: SORAFENIB
     Dates: end: 20190328
  2. EVEROLIMUS (RAD-001) [Suspect]
     Active Substance: EVEROLIMUS
     Dates: end: 20190328

REACTIONS (5)
  - Fatigue [None]
  - Lactic acidosis [None]
  - Bronchiolitis [None]
  - Dyspnoea [None]
  - Procalcitonin increased [None]

NARRATIVE: CASE EVENT DATE: 20190328
